FAERS Safety Report 7526956-6 (Version None)
Quarter: 2011Q2

REPORT INFORMATION
  Report Type: 
  Country: None (occurrence: None)
  Receive Date: 20110606
  Receipt Date: 20040715
  Transmission Date: 20111010
  Serious: Yes (Death)
  Sender: FDA-Public Use
  Company Number: PHFR2004GB02437

PATIENT
  Sex: Male

DRUGS (3)
  1. HEROIN [Suspect]
     Route: 065
  2. AMITRIPTYLINE HCL [Concomitant]
     Indication: DEPRESSION
     Dosage: 100 MG NOCTE
     Dates: start: 20010517
  3. CLOZAPINE [Suspect]
     Indication: SCHIZOPHRENIA
     Dosage: 250 MG/DAY
     Route: 048
     Dates: start: 20030819

REACTIONS (2)
  - ACCIDENTAL OVERDOSE [None]
  - COMPLETED SUICIDE [None]
